FAERS Safety Report 6098143-2 (Version None)
Quarter: 2009Q1

REPORT INFORMATION
  Report Type: 
  Country: None (occurrence: None)
  Receive Date: 20090227
  Receipt Date: 20090223
  Transmission Date: 20090719
  Serious: No
  Sender: FDA-Public Use
  Company Number: US-B.I. PHARMACEUTICALS,INC./RIDGEFIELD-2009-BP-02257BP

PATIENT
  Age: 54 Year
  Sex: Female

DRUGS (2)
  1. SPIRIVA [Suspect]
     Indication: MYCOTIC ALLERGY
     Dosage: 18MCG
     Route: 055
     Dates: start: 20081201, end: 20090223
  2. ADVAIR HFA [Concomitant]
     Indication: HYPERSENSITIVITY
     Route: 055
     Dates: start: 20081201, end: 20090201

REACTIONS (4)
  - DISTURBANCE IN ATTENTION [None]
  - DRY THROAT [None]
  - RESTLESSNESS [None]
  - WEIGHT INCREASED [None]
